FAERS Safety Report 16327560 (Version 3)
Quarter: 2020Q3

REPORT INFORMATION
  Report Type: Report from Study
  Country: US (occurrence: US)
  Receive Date: 20190517
  Receipt Date: 20200729
  Transmission Date: 20201102
  Serious: Yes (Other)
  Sender: FDA-Public Use
  Company Number: US-ACTELION-A-NJ2019-187277

PATIENT
  Sex: Female
  Weight: 66.21 kg

DRUGS (1)
  1. OPSUMIT [Suspect]
     Active Substance: MACITENTAN
     Indication: PULMONARY ARTERIAL HYPERTENSION
     Dosage: 10 MG, QD
     Route: 048
     Dates: start: 20150310

REACTIONS (11)
  - Gait disturbance [Unknown]
  - Transfusion [Unknown]
  - Cough [Unknown]
  - Pulmonary congestion [Unknown]
  - Chemotherapy [Unknown]
  - Pain [Unknown]
  - Nasopharyngitis [Unknown]
  - Dizziness [Unknown]
  - Product dose omission issue [Unknown]
  - Cholelithiasis [Unknown]
  - Oropharyngeal pain [Unknown]

NARRATIVE: CASE EVENT DATE: 2016
